FAERS Safety Report 12186763 (Version 4)
Quarter: 2017Q4

REPORT INFORMATION
  Report Type: Spontaneous
  Country: US (occurrence: US)
  Receive Date: 20160317
  Receipt Date: 20171208
  Transmission Date: 20180320
  Serious: No
  Sender: FDA-Public Use
  Company Number: US-PFIZER INC-2016104834

PATIENT
  Age: 61 Year
  Sex: Male
  Weight: 77.98 kg

DRUGS (1)
  1. XELJANZ [Suspect]
     Active Substance: TOFACITINIB CITRATE
     Indication: RHEUMATOID ARTHRITIS
     Dosage: 5 MG, UNK
     Dates: start: 2016, end: 2016

REACTIONS (2)
  - Herpes zoster [Unknown]
  - Drug ineffective [Unknown]
